FAERS Safety Report 15036115 (Version 3)
Quarter: 2018Q3

REPORT INFORMATION
  Report Type: Spontaneous
  Country: US (occurrence: US)
  Receive Date: 20180620
  Receipt Date: 20180716
  Transmission Date: 20181010
  Serious: No
  Sender: FDA-Public Use
  Company Number: US-009507513-1806USA008347

PATIENT
  Age: 36 Year
  Sex: Female
  Weight: 115.65 kg

DRUGS (2)
  1. NEXPLANON [Suspect]
     Active Substance: ETONOGESTREL
     Indication: CONTRACEPTION
     Dosage: 1 ROD, LEFT UPPER ARM
     Route: 058
     Dates: start: 20180614, end: 20180614
  2. NEXPLANON [Suspect]
     Active Substance: ETONOGESTREL
     Dosage: UNK
     Route: 059
     Dates: end: 20150127

REACTIONS (5)
  - Implant site pain [Recovered/Resolved]
  - Complication of device insertion [Not Recovered/Not Resolved]
  - Device deployment issue [Recovered/Resolved]
  - Product use issue [Unknown]
  - Product quality issue [Recovered/Resolved]

NARRATIVE: CASE EVENT DATE: 20180614
